FAERS Safety Report 6796159-1 (Version None)
Quarter: 2010Q2

REPORT INFORMATION
  Report Type: 
  Country: None (occurrence: None)
  Receive Date: 20100625
  Receipt Date: 20100620
  Transmission Date: 20101027
  Serious: Yes (Hospitalization)
  Sender: FDA-Public Use
  Company Number: US-AMGEN-KDL419437

PATIENT
  Sex: Female

DRUGS (3)
  1. ENBREL [Suspect]
     Indication: PSORIATIC ARTHROPATHY
     Route: 058
     Dates: start: 20080717
  2. ENBREL [Suspect]
     Indication: PSORIASIS
  3. HUMIRA [Concomitant]
     Dates: end: 20100501

REACTIONS (5)
  - INJECTION SITE PAIN [None]
  - INJECTION SITE URTICARIA [None]
  - PALPITATIONS [None]
  - PSORIASIS [None]
  - THERAPEUTIC RESPONSE DECREASED [None]
